FAERS Safety Report 17307003 (Version 2)
Quarter: 2020Q1

REPORT INFORMATION
  Report Type: Spontaneous
  Country: US (occurrence: US)
  Receive Date: 20200123
  Receipt Date: 20200131
  Transmission Date: 20200409
  Serious: No
  Sender: FDA-Public Use
  Company Number: US-JNJFOC-20200113883

PATIENT
  Sex: Female
  Weight: 52.21 kg

DRUGS (1)
  1. WOMENS ROGAINE [Suspect]
     Active Substance: MINOXIDIL
     Indication: ALOPECIA
     Dosage: THE DROPS, AS THE LABEL INSTRUCTIONS STATED. ONLY USED IT ONE TIME, THE FIRST APPLICATION.
     Route: 061

REACTIONS (3)
  - Headache [Recovered/Resolved]
  - Adverse event [Recovered/Resolved]
  - Dizziness [Recovered/Resolved]
